FAERS Safety Report 25762513 (Version 1)
Quarter: 2025Q3

REPORT INFORMATION
  Report Type: Spontaneous
  Country: CN (occurrence: CN)
  Receive Date: 20250904
  Receipt Date: 20250904
  Transmission Date: 20251021
  Serious: Yes (Hospitalization, Other)
  Sender: PFIZER
  Company Number: CN-TAKEDA-2025TUS076907

PATIENT
  Age: 27 Year
  Sex: Male
  Weight: 58 kg

DRUGS (7)
  1. ADCETRIS [Suspect]
     Active Substance: BRENTUXIMAB VEDOTIN
     Indication: Nodular lymphocyte predominant Hodgkin lymphoma
     Dosage: 100 MILLIGRAM, QD
     Route: 041
     Dates: start: 20250627
  2. VINCRISTINE SULFATE [Suspect]
     Active Substance: VINCRISTINE SULFATE
     Indication: Nodular lymphocyte predominant Hodgkin lymphoma
     Dosage: 2 MILLIGRAM, QD
     Route: 041
     Dates: start: 20250627
  3. DACARBAZINE [Suspect]
     Active Substance: DACARBAZINE
     Indication: Nodular lymphocyte predominant Hodgkin lymphoma
     Dosage: 600 MILLIGRAM, QD
     Route: 041
     Dates: start: 20250627
  4. DOXORUBICIN HYDROCHLORIDE [Suspect]
     Active Substance: DOXORUBICIN HYDROCHLORIDE
     Indication: Nodular lymphocyte predominant Hodgkin lymphoma
     Dosage: 30 MILLIGRAM, QD
     Route: 041
     Dates: start: 20250627
  5. SODIUM CHLORIDE [Suspect]
     Active Substance: SODIUM CHLORIDE
     Indication: Nodular lymphocyte predominant Hodgkin lymphoma
     Dosage: 500 MILLILITER, QD
     Route: 041
     Dates: start: 20250627, end: 20250627
  6. SODIUM CHLORIDE [Suspect]
     Active Substance: SODIUM CHLORIDE
     Dosage: 100 MILLILITER, QD
     Route: 041
     Dates: start: 20250627
  7. DEXTROSE [Suspect]
     Active Substance: DEXTROSE MONOHYDRATE
     Indication: Nodular lymphocyte predominant Hodgkin lymphoma
     Dosage: 500 MILLILITER, QD
     Route: 041
     Dates: start: 20250627

REACTIONS (1)
  - Myelosuppression [Recovering/Resolving]

NARRATIVE: CASE EVENT DATE: 20250708
